FAERS Safety Report 21036272 (Version 2)
Quarter: 2022Q3

REPORT INFORMATION
  Report Type: Spontaneous
  Country: RU (occurrence: RU)
  Receive Date: 20220701
  Receipt Date: 20220708
  Transmission Date: 20221026
  Serious: Yes (Death, Hospitalization, Other)
  Sender: FDA-Public Use
  Company Number: RU-TAKEDA-2022TUS043710

PATIENT
  Age: 24 Year
  Sex: Male
  Weight: 164 kg

DRUGS (1)
  1. ADCETRIS [Suspect]
     Active Substance: BRENTUXIMAB VEDOTIN
     Indication: Product used for unknown indication
     Dosage: 1.8 MILLIGRAM/KILOGRAM
     Route: 065

REACTIONS (3)
  - Hepatic cirrhosis [Fatal]
  - Overdose [Unknown]
  - Dose calculation error [Unknown]
